FAERS Safety Report 12272974 (Version 3)
Quarter: 2016Q2

REPORT INFORMATION
  Report Type: Spontaneous
  Country: US (occurrence: US)
  Receive Date: 20160415
  Receipt Date: 20160615
  Transmission Date: 20160815
  Serious: Yes (Other)
  Sender: FDA-Public Use
  Company Number: US-PFIZER INC-2016206247

PATIENT
  Age: 57 Year
  Sex: Male

DRUGS (1)
  1. XALATAN [Suspect]
     Active Substance: LATANOPROST
     Dosage: 2 GTT, 1X/DAY (1 DROP EACH EYE EVERY EVENING)

REACTIONS (2)
  - Visual impairment [Unknown]
  - Disease progression [Unknown]
